FAERS Safety Report 24102207 (Version 1)
Quarter: 2024Q3

REPORT INFORMATION
  Report Type: Spontaneous
  Country: US (occurrence: US)
  Receive Date: 20240717
  Receipt Date: 20240717
  Transmission Date: 20241016
  Serious: No
  Sender: NOVO NORDISK
  Company Number: US-NOVOPROD-1191563

PATIENT
  Sex: Female

DRUGS (1)
  1. OZEMPIC [Suspect]
     Active Substance: SEMAGLUTIDE
     Indication: Type 2 diabetes mellitus
     Dosage: 0.5 MG
     Route: 058
     Dates: start: 202401

REACTIONS (3)
  - Alopecia [Recovered/Resolved]
  - Blood glucose decreased [Recovered/Resolved]
  - Glycosylated haemoglobin decreased [Recovered/Resolved]

NARRATIVE: CASE EVENT DATE: 20240101
